FAERS Safety Report 8357761-9 (Version None)
Quarter: 2012Q2

REPORT INFORMATION
  Report Type: 
  Country: None (occurrence: None)
  Receive Date: 20120514
  Receipt Date: 20120509
  Transmission Date: 20120825
  Serious: Yes (Hospitalization, Other)
  Sender: FDA-Public Use
  Company Number: CH-ABBOTT-12P-151-0926917-00

PATIENT
  Age: 28 Year
  Sex: Female

DRUGS (6)
  1. AZATHIOPRINE [Concomitant]
     Indication: CROHN'S DISEASE
     Dates: start: 20070601, end: 20091101
  2. HUMIRA [Suspect]
     Indication: CROHN'S DISEASE
     Dates: start: 20080301
  3. HUMIRA [Suspect]
     Dosage: DOUBLE DOSE
     Dates: end: 20100101
  4. HUMIRA [Suspect]
     Dosage: DOUBLE DOSE
     Dates: start: 20090101, end: 20091101
  5. HUMIRA [Suspect]
     Dates: start: 20110125, end: 20120315
  6. HUMIRA [Suspect]
     Dates: start: 20100501, end: 20101112

REACTIONS (6)
  - ABSCESS [None]
  - ANAPHYLACTIC SHOCK [None]
  - SYSTEMIC LUPUS ERYTHEMATOSUS [None]
  - CROHN'S DISEASE [None]
  - MUSCULOSKELETAL PAIN [None]
  - ARTHRALGIA [None]
